FAERS Safety Report 8202552-2 (Version None)
Quarter: 2012Q1

REPORT INFORMATION
  Report Type: 
  Country: None (occurrence: None)
  Receive Date: 20120312
  Receipt Date: 20120303
  Transmission Date: 20120608
  Serious: Yes (Hospitalization)
  Sender: FDA-Public Use
  Company Number: PHHO2012TH003906

PATIENT
  Sex: Male
  Weight: 60 kg

DRUGS (8)
  1. LOSARTAN POTASSIUM [Concomitant]
     Indication: CARDIAC FAILURE
     Dosage: 40 MG, QD
     Dates: start: 20111107
  2. BLINDED NO TREATMENT RECEIVED [Suspect]
     Indication: CARDIAC FAILURE CHRONIC
     Dosage: NO TREATMENT
  3. SPIRONOLACTONE [Concomitant]
     Indication: CARDIAC FAILURE
     Dosage: 20 MG, TID
     Dates: start: 20120103
  4. VALSARTAN [Suspect]
     Indication: CARDIAC FAILURE CHRONIC
     Dosage: NO TREATMENT
  5. WARFARIN SODIUM [Concomitant]
     Indication: PROPHYLAXIS
     Dosage: 20 MG, DINNER
     Dates: start: 20110905
  6. ENALAPRIL MALEATE [Suspect]
     Indication: CARDIAC FAILURE CHRONIC
     Dosage: NO TREATMENT
  7. FUROSEMIDE [Suspect]
     Indication: CARDIAC FAILURE
     Dosage: 40 MG, QD
     Dates: start: 20111010, end: 20120228
  8. FUROSEMIDE [Suspect]
     Dosage: 40 MG, BID
     Dates: start: 20120229

REACTIONS (1)
  - GOUTY ARTHRITIS [None]
